FAERS Safety Report 13963078 (Version 1)
Quarter: 2017Q3

REPORT INFORMATION
  Report Type: Spontaneous
  Country: US (occurrence: US)
  Receive Date: 20170913
  Receipt Date: 20170913
  Transmission Date: 20171128
  Serious: No
  Sender: FDA-Public Use
  Company Number: US-PFIZER INC-2017393327

PATIENT
  Age: 60 Year
  Sex: Female
  Weight: 61.23 kg

DRUGS (5)
  1. WELLBUTRIN [Concomitant]
     Active Substance: BUPROPION HYDROCHLORIDE
     Indication: ANXIETY
     Dosage: 150 MG, 2X/DAY(150MG TWICE A DAY BY MOUTH)
     Route: 048
  2. CHANTIX [Suspect]
     Active Substance: VARENICLINE TARTRATE
     Indication: SMOKING CESSATION THERAPY
     Dosage: 1 MG, 2X/DAY
     Route: 048
     Dates: start: 20170519
  3. ACLOVIR [Concomitant]
     Indication: HERPES VIRUS INFECTION
     Dosage: 400 MG, 2X/DAY(400MG TWICE A DAY BY MOUTH)
     Route: 048
  4. ANASTROZOLE. [Concomitant]
     Active Substance: ANASTROZOLE
     Indication: BREAST CANCER
     Dosage: 1 MG, 1X/DAY(1MG ONCE A DAY BY MOUTH AT NIGHT)
     Route: 048
  5. VALIUM [Concomitant]
     Active Substance: DIAZEPAM
     Indication: DEPRESSION
     Dosage: 10 MG, 1X/DAY(10MG ONCE A DAY BY MOUTH)
     Route: 048

REACTIONS (5)
  - Drug dose omission [Unknown]
  - Arthralgia [Recovering/Resolving]
  - Memory impairment [Not Recovered/Not Resolved]
  - Pain in extremity [Recovering/Resolving]
  - Fall [Unknown]

NARRATIVE: CASE EVENT DATE: 2017
